FAERS Safety Report 23209890 (Version 3)
Quarter: 2024Q1

REPORT INFORMATION
  Report Type: Spontaneous
  Country: JP (occurrence: JP)
  Receive Date: 20231121
  Receipt Date: 20240206
  Transmission Date: 20240410
  Serious: No
  Sender: FDA-Public Use
  Company Number: JP-JNJFOC-20231148170

PATIENT
  Age: 18 Year
  Sex: Female

DRUGS (11)
  1. TRACLEER [Suspect]
     Active Substance: BOSENTAN
     Indication: Pulmonary arterial hypertension
     Dosage: DOSE UNKNOWN
     Route: 048
  2. TRACLEER [Suspect]
     Active Substance: BOSENTAN
     Route: 048
  3. OPSUMIT [Suspect]
     Active Substance: MACITENTAN
     Indication: Heart disease congenital
     Route: 048
  4. OXYGEN [Concomitant]
     Active Substance: OXYGEN
     Dosage: DOSE UNKNOWN
     Route: 055
  5. OXYGEN [Concomitant]
     Active Substance: OXYGEN
     Dosage: 4L PER DAY
     Route: 055
  6. DIGOXIN [Concomitant]
     Active Substance: DIGOXIN
     Route: 048
  7. SILDENAFIL CITRATE [Concomitant]
     Active Substance: SILDENAFIL CITRATE
     Dosage: DOSE UNKNOWN
     Route: 048
  8. TREPROSTINIL [Concomitant]
     Active Substance: TREPROSTINIL
     Dosage: DOSE UNKNOWN
     Route: 058
  9. DIGOXIN [Concomitant]
     Active Substance: DIGOXIN
     Dosage: DOSE UNKNOWN
  10. ENALAPRIL [Concomitant]
     Active Substance: ENALAPRIL
     Dosage: DOSE UNKNOWN
     Route: 048
  11. ENALAPRIL [Concomitant]
     Active Substance: ENALAPRIL
     Route: 048

REACTIONS (4)
  - Abortion induced [Unknown]
  - Exposure during pregnancy [Unknown]
  - Treatment noncompliance [Unknown]
  - Headache [Unknown]
